FAERS Safety Report 8391740-0 (Version None)
Quarter: 2012Q2

REPORT INFORMATION
  Report Type: 
  Country: None (occurrence: None)
  Receive Date: 20120529
  Receipt Date: 20120525
  Transmission Date: 20120825
  Serious: Yes (Other)
  Sender: FDA-Public Use
  Company Number: CN-PFIZER INC-2012028501

PATIENT
  Age: 35 Year
  Sex: Male

DRUGS (2)
  1. ZOLOFT [Suspect]
     Indication: OBSESSIVE-COMPULSIVE DISORDER
     Dosage: 2 TABLETS PER DAY
     Route: 048
  2. FLUVOXAMINE [Concomitant]
     Dosage: UNK

REACTIONS (4)
  - DRUG DEPENDENCE [None]
  - ANXIETY [None]
  - DRUG INEFFECTIVE [None]
  - AFFECT LABILITY [None]
